FAERS Safety Report 9624589 (Version 2)
Quarter: 2013Q4

REPORT INFORMATION
  Report Type: Report from Study
  Country: US (occurrence: US)
  Receive Date: 20131015
  Receipt Date: 20131022
  Transmission Date: 20140711
  Serious: No
  Sender: FDA-Public Use
  Company Number: US-TEVA-437485USA

PATIENT
  Sex: Female

DRUGS (1)
  1. PROVIGIL [Suspect]

REACTIONS (1)
  - Live birth [Unknown]
